FAERS Safety Report 11143278 (Version 2)
Quarter: 2015Q4

REPORT INFORMATION
  Report Type: Spontaneous
  Country: US (occurrence: US)
  Receive Date: 20150526
  Receipt Date: 20151103
  Transmission Date: 20160304
  Serious: Yes (Life-Threatening, Hospitalization)
  Sender: FDA-Public Use
  Company Number: US-BEH-2015051357

PATIENT
  Age: 58 Year
  Sex: Male

DRUGS (1)
  1. ALBUMIN [Suspect]
     Active Substance: ALBUMIN (HUMAN)
     Indication: PLASMAPHERESIS
     Dates: start: 20150508, end: 20150508

REACTIONS (2)
  - Chills [Recovered/Resolved]
  - Pain in extremity [Recovered/Resolved]

NARRATIVE: CASE EVENT DATE: 20150508
